FAERS Safety Report 7435711-7 (Version None)
Quarter: 2011Q2

REPORT INFORMATION
  Report Type: 
  Country: None (occurrence: None)
  Receive Date: 20110425
  Receipt Date: 20110412
  Transmission Date: 20111010
  Serious: Yes (Other)
  Sender: FDA-Public Use
  Company Number: JP-PFIZER INC-2011087966

PATIENT
  Age: 83 Year
  Sex: Male

DRUGS (6)
  1. LIPITOR [Suspect]
     Dosage: 10 MG, 1X/DAY
     Route: 048
     Dates: end: 20101130
  2. PLAVIX [Suspect]
     Dosage: 75 MG, 1X/DAY
     Route: 048
     Dates: end: 20101130
  3. EC DOPARL [Suspect]
     Dosage: UNK
     Route: 048
     Dates: end: 20101130
  4. ALLOPURINOL [Suspect]
     Dosage: 100 MG, 1X/DAY
     Route: 048
     Dates: end: 20101130
  5. SIGMART [Suspect]
     Dosage: UNK
     Route: 048
     Dates: end: 20101130
  6. ANPLAG [Suspect]
     Dosage: UNK
     Route: 048
     Dates: end: 20101130

REACTIONS (1)
  - DERMATITIS EXFOLIATIVE [None]
